FAERS Safety Report 16672372 (Version 1)
Quarter: 2019Q3

REPORT INFORMATION
  Report Type: Spontaneous
  Country: FR (occurrence: FR)
  Receive Date: 20190806
  Receipt Date: 20190806
  Transmission Date: 20191004
  Serious: Yes (Life-Threatening)
  Sender: FDA-Public Use
  Company Number: FR-ACCORD-150389

PATIENT
  Age: 32 Year
  Sex: Female
  Weight: 40 kg

DRUGS (10)
  1. PANTOPRAZOLE [Concomitant]
     Active Substance: PANTOPRAZOLE
     Route: 048
  2. NOCTAMIDE [Concomitant]
     Active Substance: LORMETAZEPAM
     Dosage: STRENGTH: 1 MG, SCORED TABLET
     Route: 048
  3. THERALENE [Concomitant]
     Active Substance: TRIMEPRAZINE
     Dosage: IF NECESSARY, STRENGTH: 4 %
     Route: 048
  4. FOLIC ACID. [Concomitant]
     Active Substance: FOLIC ACID
     Route: 048
  5. PHOSPHONEUROS [Concomitant]
     Active Substance: CALCIUM PHOSPHATE, DIBASIC, ANHYDROUS\MAGNESIUM GLYCEROPHOSPHATE\PHOSPHORIC ACID\SODIUM PHOSPHATE, DIBASIC
     Route: 048
  6. QUETIAPINE. [Suspect]
     Active Substance: QUETIAPINE
     Indication: ANOREXIA NERVOSA
     Route: 048
     Dates: start: 2014
  7. HALDOL DECANOAS [Suspect]
     Active Substance: HALOPERIDOL DECANOATE
     Indication: ANOREXIA NERVOSA
     Route: 030
  8. TEMESTA [Concomitant]
     Dosage: STRENGTH: 1 MG, SCORED TABLET
     Route: 048
  9. COLECALCIFEROL [Concomitant]
     Active Substance: CHOLECALCIFEROL
     Route: 048
  10. BEVITINE [Concomitant]
     Active Substance: THIAMINE HYDROCHLORIDE
     Dosage: STRENGTH: 250 MG
     Route: 048

REACTIONS (4)
  - Off label use [Unknown]
  - Leukopenia [Not Recovered/Not Resolved]
  - Neutropenia [Not Recovered/Not Resolved]
  - Anaemia [Not Recovered/Not Resolved]

NARRATIVE: CASE EVENT DATE: 201902
